FAERS Safety Report 4609035-7 (Version None)
Quarter: 2005Q1

REPORT INFORMATION
  Report Type: 
  Country: None (occurrence: None)
  Receive Date: 20050315
  Receipt Date: 20050309
  Transmission Date: 20050727
  Serious: Yes (Hospitalization)
  Sender: FDA-Public Use
  Company Number: US-ABBOTT-05P-163-0293343-00

PATIENT
  Age: 60 Year
  Sex: Female

DRUGS (3)
  1. HUMIRA [Suspect]
     Indication: RHEUMATOID ARTHRITIS
     Route: 058
     Dates: start: 20040101, end: 20050101
  2. METHOTREXATE [Concomitant]
     Indication: RHEUMATOID ARTHRITIS
     Route: 048
  3. FOLIC ACID [Concomitant]
     Indication: RHEUMATOID ARTHRITIS
     Route: 048

REACTIONS (10)
  - BONE PAIN [None]
  - DIZZINESS [None]
  - EAR INFECTION [None]
  - FATIGUE [None]
  - HEADACHE [None]
  - LOSS OF CONTROL OF LEGS [None]
  - MUSCULOSKELETAL STIFFNESS [None]
  - ORAL PAIN [None]
  - SENSORY LOSS [None]
  - SINUSITIS [None]
